FAERS Safety Report 6724756-8 (Version None)
Quarter: 2010Q2

REPORT INFORMATION
  Report Type: 
  Country: None (occurrence: None)
  Receive Date: 20100513
  Receipt Date: 20100503
  Transmission Date: 20101027
  Serious: Yes (Hospitalization)
  Sender: FDA-Public Use
  Company Number: GB-AMGEN-QUU410984

PATIENT
  Age: 64 Year
  Sex: Female

DRUGS (1)
  1. ENBREL [Suspect]
     Indication: ANKYLOSING SPONDYLITIS
     Dosage: UNSPECIFIED
     Dates: start: 20090401

REACTIONS (7)
  - ANAEMIA [None]
  - DIARRHOEA [None]
  - HYPOALBUMINAEMIA [None]
  - LYMPHADENOPATHY [None]
  - NIGHT SWEATS [None]
  - PLEURAL EFFUSION [None]
  - WEIGHT DECREASED [None]
